FAERS Safety Report 7199862-7 (Version None)
Quarter: 2010Q4

REPORT INFORMATION
  Report Type: 
  Country: None (occurrence: None)
  Receive Date: 20101215
  Receipt Date: 20100913
  Transmission Date: 20110411
  Serious: Yes (Other)
  Sender: FDA-Public Use
  Company Number: 2010AP001978

PATIENT
  Age: 38 Year
  Sex: Female

DRUGS (2)
  1. CITALOPRAM HYDROBROMIDE [Suspect]
     Indication: PRODUCT USED FOR UNKNOWN INDICATION
  2. HEPATITIS B VACCINE (HEPATITIS B VACCINE) [Suspect]

REACTIONS (7)
  - ABDOMINAL WALL DISORDER [None]
  - ECTOPIA CORDIS [None]
  - FOETAL DISORDER [None]
  - HYDROPS FOETALIS [None]
  - LIMB MALFORMATION [None]
  - LIMB REDUCTION DEFECT [None]
  - MATERNAL DRUGS AFFECTING FOETUS [None]
